FAERS Safety Report 7464986-3 (Version None)
Quarter: 2011Q2

REPORT INFORMATION
  Report Type: 
  Country: None (occurrence: None)
  Receive Date: 20110505
  Receipt Date: 20110505
  Transmission Date: 20111010
  Serious: Yes (Hospitalization)
  Sender: FDA-Public Use
  Company Number: None

PATIENT
  Age: 56 Year
  Sex: Male

DRUGS (4)
  1. PRIVIGEN [Suspect]
     Indication: POLYNEUROPATHY IDIOPATHIC PROGRESSIVE
     Dosage: 100ML (100GM) PER RATE PROTOCAL IV ONCE EVERY 2 WEEKS
     Route: 042
     Dates: start: 20090501, end: 20100301
  2. PRIVIGEN [Suspect]
     Indication: POLYNEUROPATHY
     Dosage: 100ML (100GM) PER RATE PROTOCAL IV ONCE EVERY 2 WEEKS
     Route: 042
     Dates: start: 20090501, end: 20100301
  3. SODIUM CHLORIDE [Concomitant]
  4. PRIVIGEN [Suspect]

REACTIONS (5)
  - DIZZINESS [None]
  - CHEST PAIN [None]
  - PULMONARY THROMBOSIS [None]
  - GASTROOESOPHAGEAL REFLUX DISEASE [None]
  - PYREXIA [None]
